FAERS Safety Report 8847615 (Version 1)
Quarter: 2012Q4

REPORT INFORMATION
  Report Type: 
  Country: CA (occurrence: CA)
  Receive Date: 20121018
  Receipt Date: 20121018
  Transmission Date: 20130627
  Serious: Yes (Hospitalization, Disabling, Other)
  Sender: FDA-Public Use
  Company Number: CA-ELI_LILLY_AND_COMPANY-CA201210002060

PATIENT
  Age: 23 Year
  Sex: Male
  Weight: 98 kg

DRUGS (5)
  1. ZYPREXA [Suspect]
     Dosage: 120 mg, unknown
     Route: 048
  2. ATIVAN [Concomitant]
     Dosage: 6 mg, unknown
  3. CHLORPROMAZINE [Concomitant]
     Dosage: 1 DF, unknown
     Route: 048
  4. HALOPERIDOL [Concomitant]
     Dosage: 4 g, unknown
     Route: 048
  5. RISPERDAL [Concomitant]

REACTIONS (2)
  - Dysphagia [Not Recovered/Not Resolved]
  - Overdose [Unknown]
